FAERS Safety Report 17041464 (Version 1)
Quarter: 2019Q4

REPORT INFORMATION
  Report Type: Other
  Country: DE (occurrence: DE)
  Receive Date: 20191118
  Receipt Date: 20191118
  Transmission Date: 20200122
  Serious: Yes (Other)
  Sender: FDA-Public Use
  Company Number: DE-LUPIN PHARMACEUTICALS INC.-2019-07429

PATIENT
  Age: 1 Day
  Sex: Male
  Weight: 3.69 kg

DRUGS (5)
  1. QUETIAPINE FUMARATE. [Suspect]
     Active Substance: QUETIAPINE FUMARATE
     Indication: OBSESSIVE-COMPULSIVE DISORDER
     Dosage: 100 MILLIGRAM, QD, (100 MG/D (75 MG RETARD AND 25 MG UNRETARD))
     Route: 064
     Dates: start: 20180525, end: 20190301
  2. SERTRALINE [Suspect]
     Active Substance: SERTRALINE HYDROCHLORIDE
     Indication: OBSESSIVE-COMPULSIVE DISORDER
     Dosage: 200 MILLIGRAM, QD (200-0-0)
     Route: 064
     Dates: start: 20180525, end: 20190301
  3. VAXIGRIPTETRA [Concomitant]
     Active Substance: INFLUENZA VIRUS VACCINE QUADRIVALENT TYPE A+B
     Indication: IMMUNISATION
     Dosage: UNK
     Route: 064
     Dates: start: 20181128, end: 20181128
  4. ENOXAPARIN [Concomitant]
     Active Substance: ENOXAPARIN
     Indication: LIPOPROTEIN (A) INCREASED
     Dosage: 40 MILLIGRAM, QD
     Route: 064
     Dates: start: 20180527, end: 20190301
  5. QUETIAPINE FUMARATE EXTENDED-RELEASE [Suspect]
     Active Substance: QUETIAPINE FUMARATE
     Indication: OBSESSIVE-COMPULSIVE DISORDER
     Dosage: 100 MILLIGRAM, QD, (100 MG/D (75 MG RETARD AND 25 MG UNRETARD))
     Route: 064
     Dates: start: 20180525, end: 20190301

REACTIONS (3)
  - Respiratory disorder neonatal [Recovered/Resolved]
  - Foetal exposure during pregnancy [Unknown]
  - Infantile apnoea [Recovered/Resolved]

NARRATIVE: CASE EVENT DATE: 20190301
